FAERS Safety Report 7724745-0 (Version None)
Quarter: 2011Q3

REPORT INFORMATION
  Report Type: 
  Country: None (occurrence: None)
  Receive Date: 20110901
  Receipt Date: 20110830
  Transmission Date: 20111222
  Serious: Yes (Life-Threatening, Hospitalization)
  Sender: FDA-Public Use
  Company Number: BR-PFIZER INC-2011203332

PATIENT
  Age: 86 Year
  Sex: Female

DRUGS (2)
  1. ESCITALOPRAM [Suspect]
     Dosage: 10 MG, UNK
     Route: 048
     Dates: start: 20101201
  2. LYRICA [Suspect]
     Dosage: 75 MG DAILY
     Route: 048
     Dates: start: 20101201, end: 20110526

REACTIONS (1)
  - ATRIAL FIBRILLATION [None]
